FAERS Safety Report 24990822 (Version 1)
Quarter: 2025Q1

REPORT INFORMATION
  Report Type: Spontaneous
  Country: CH (occurrence: CH)
  Receive Date: 20250220
  Receipt Date: 20250220
  Transmission Date: 20250409
  Serious: Yes (Hospitalization)
  Sender: PFIZER
  Company Number: None

PATIENT
  Age: 54 Year
  Sex: Male
  Weight: 70 kg

DRUGS (14)
  1. LORAZEPAM [Suspect]
     Active Substance: LORAZEPAM
     Dosage: 1 MG, 4X/DAY, AS NEEDED
     Route: 048
     Dates: start: 20240724
  2. REMERON [Suspect]
     Active Substance: MIRTAZAPINE
     Dosage: 30 MG, 1X/DAY
     Dates: start: 20240625
  3. CLOTHIAPINE [Suspect]
     Active Substance: CLOTHIAPINE
     Dosage: 40 MG, 1X/DAY
     Route: 048
     Dates: start: 20241120, end: 20250110
  4. METHADONE HYDROCHLORIDE [Suspect]
     Active Substance: METHADONE HYDROCHLORIDE
     Indication: Drug dependence
     Dosage: 60 MG, 1X/DAY
     Route: 048
     Dates: start: 20241106
  5. QUETIAPINE FUMARATE [Suspect]
     Active Substance: QUETIAPINE FUMARATE
     Dosage: 50 MG, 1X/DAY
     Route: 048
     Dates: start: 20241107, end: 20250110
  6. AMISULPRIDE [Suspect]
     Active Substance: AMISULPRIDE
     Dosage: 400 MG, 2X/DAY
     Route: 048
     Dates: start: 20241107
  7. CHLORPROTHIXENE [Suspect]
     Active Substance: CHLORPROTHIXENE
     Dosage: 50 MG, 4X/DAY
     Route: 048
     Dates: start: 20241107
  8. CALCIUM\CHOLECALCIFEROL [Concomitant]
     Active Substance: CALCIUM\CHOLECALCIFEROL
     Dosage: 1 DF, 1X/DAY
     Route: 048
  9. FOLIC ACID [Concomitant]
     Active Substance: FOLIC ACID
     Dosage: 5 MG, 1X/DAY
     Route: 048
  10. PANTOPRAZOLE SODIUM [Concomitant]
     Active Substance: PANTOPRAZOLE SODIUM
     Dosage: 40 MG, 1X/DAY
     Route: 048
  11. HALDOL [Concomitant]
     Active Substance: HALOPERIDOL
     Route: 048
  12. BENEXOL B12 [COCARBOXYLASE HYDROCHLORIDE;HYDROXOCOBALAMIN;PYRIDOXINE H [Concomitant]
     Dosage: 1 DF, 1X/DAY
     Route: 048
  13. DUPHALAC [Concomitant]
     Active Substance: LACTULOSE
     Dosage: 20 ML, 3X/DAY
     Route: 048
  14. CARVEDILOL [Concomitant]
     Active Substance: CARVEDILOL

REACTIONS (5)
  - Parkinsonism [Unknown]
  - Somnolence [Recovering/Resolving]
  - Bradykinesia [Unknown]
  - Reduced facial expression [Unknown]
  - Muscle rigidity [Unknown]

NARRATIVE: CASE EVENT DATE: 20250110
